FAERS Safety Report 23992733 (Version 1)
Quarter: 2024Q2

REPORT INFORMATION
  Report Type: Spontaneous
  Country: CO (occurrence: CO)
  Receive Date: 20240620
  Receipt Date: 20240620
  Transmission Date: 20240716
  Serious: Yes (Other)
  Sender: FDA-Public Use
  Company Number: CO-JUBILANT CADISTA PHARMACEUTICALS-2024CO000820

PATIENT

DRUGS (1)
  1. ITRACONAZOLE [Suspect]
     Active Substance: ITRACONAZOLE
     Indication: Histoplasmosis disseminated
     Dosage: 300 MG, PER DAY
     Route: 065

REACTIONS (1)
  - Renal impairment [Unknown]
